FAERS Safety Report 4557169-8 (Version None)
Quarter: 2005Q1

REPORT INFORMATION
  Report Type: 
  Country: None (occurrence: None)
  Receive Date: 20050120
  Receipt Date: 20050112
  Transmission Date: 20050727
  Serious: Yes (Hospitalization, Other)
  Sender: FDA-Public Use
  Company Number: US-GLAXOSMITHKLINE-A0540407A

PATIENT
  Age: 30 Year
  Sex: Female

DRUGS (3)
  1. CITRUCEL REGULAR SUSPENSION [Suspect]
     Indication: MEDICAL DIET
     Route: 048
     Dates: start: 19940101, end: 20040101
  2. CITRUCEL SUGAR-FREE SUSPENSION ORANGE [Suspect]
     Indication: MEDICAL DIET
     Route: 048
     Dates: start: 19940101, end: 20040101
  3. CITRUCEL [Concomitant]
     Indication: GASTROINTESTINAL DISORDER
     Route: 048
     Dates: start: 20040101

REACTIONS (6)
  - ABDOMINAL PAIN [None]
  - CHOLELITHIASIS [None]
  - COLD SWEAT [None]
  - DYSPNOEA [None]
  - NAUSEA [None]
  - WEIGHT DECREASED [None]
